FAERS Safety Report 16751104 (Version 2)
Quarter: 2019Q3

REPORT INFORMATION
  Report Type: Report from Study
  Country: US (occurrence: US)
  Receive Date: 20190828
  Receipt Date: 20190906
  Transmission Date: 20191005
  Serious: Yes (Hospitalization)
  Sender: FDA-Public Use
  Company Number: US-ACTELION-A-NJ2017-156066

PATIENT
  Age: 36 Year
  Sex: Female

DRUGS (5)
  1. OPSUMIT [Suspect]
     Active Substance: MACITENTAN
     Indication: PULMONARY HYPERTENSION
     Dosage: 10 MG, QD
     Route: 048
     Dates: start: 20170120
  2. ASPIRIN 81 [Concomitant]
     Active Substance: ASPIRIN
  3. ALLOPURINOL. [Concomitant]
     Active Substance: ALLOPURINOL
  4. XARELTO [Concomitant]
     Active Substance: RIVAROXABAN
  5. LEVOTHYROXINE SODIUM. [Concomitant]
     Active Substance: LEVOTHYROXINE SODIUM

REACTIONS (20)
  - Sepsis [Not Recovered/Not Resolved]
  - Syncope [Recovered/Resolved]
  - Myelofibrosis [Recovered/Resolved]
  - Hospitalisation [Unknown]
  - Functional residual capacity abnormal [Recovered/Resolved]
  - Blood pressure diastolic increased [Recovered/Resolved]
  - Ventricular fibrillation [Recovered/Resolved]
  - Diarrhoea [Not Recovered/Not Resolved]
  - Haemorrhagic diathesis [Not Recovered/Not Resolved]
  - Haemoglobin decreased [Unknown]
  - Transfusion [Unknown]
  - Dyspepsia [Recovered/Resolved]
  - Increased tendency to bruise [Not Recovered/Not Resolved]
  - Device malfunction [Recovered/Resolved]
  - Fluid overload [Recovered/Resolved]
  - Tooth disorder [Unknown]
  - Dyspnoea [Recovered/Resolved]
  - Pneumonia [Not Recovered/Not Resolved]
  - Product dose omission [Not Recovered/Not Resolved]
  - Decreased appetite [Recovered/Resolved]

NARRATIVE: CASE EVENT DATE: 201704
